FAERS Safety Report 8809254 (Version 1)
Quarter: 2012Q4

REPORT INFORMATION
  Report Type: 
  Country: US (occurrence: None)
  Receive Date: 20120921
  Receipt Date: 20120921
  Transmission Date: 20130627
  Serious: Yes (Hospitalization)
  Sender: FDA-Public Use
  Company Number: None

PATIENT
  Sex: Female
  Weight: 44.8 kg

DRUGS (1)
  1. CETUXIMAB [Suspect]

REACTIONS (5)
  - Oral pain [None]
  - Radiation skin injury [None]
  - Dermatitis acneiform [None]
  - Dry skin [None]
  - Dysphagia [None]
